FAERS Safety Report 15700043 (Version 1)
Quarter: 2018Q4

REPORT INFORMATION
  Report Type: Other
  Country: PT (occurrence: PT)
  Receive Date: 20181207
  Receipt Date: 20181207
  Transmission Date: 20190205
  Serious: Yes (Hospitalization, Other)
  Sender: FDA-Public Use
  Company Number: PT-B. BRAUN MEDICAL INC.-2059820

PATIENT
  Age: 73 Year
  Sex: Female

DRUGS (1)
  1. HEPARIN SODIUM IN DEXTROSE [Suspect]
     Active Substance: HEPARIN SODIUM

REACTIONS (3)
  - Haemodialysis complication [None]
  - Heparin-induced thrombocytopenia [None]
  - Arteriovenous fistula thrombosis [None]
